FAERS Safety Report 8499474 (Version 2)
Quarter: 2013Q2

REPORT INFORMATION
  Report Type: Spontaneous
  Country: US (occurrence: None)
  Receive Date: 20120322
  Receipt Date: 20120621
  Transmission Date: 20140414
  Serious: Yes (Hospitalization)
  Sender: FDA-Public Use
  Company Number: UTC-014974

PATIENT
  Age: 55 Year
  Sex: Female
  Weight: 61.4 kg

DRUGS (2)
  1. TYVASO (6 MICROGRAM, AEROSOL FOR INHALATION) (TREPROSTINIL SODIUM) [Suspect]
     Indication: PULMONARY ARTERIAL HYPERTENSION
     Dosage: 18-54 MICROGRAMS,INHALATION
     Route: 055
     Dates: start: 20111006
  2. REVATIO [Concomitant]

REACTIONS (1)
  - DIABETES MELLITUS [None]
